FAERS Safety Report 20319395 (Version 2)
Quarter: 2022Q1

REPORT INFORMATION
  Report Type: Spontaneous
  Country: US (occurrence: US)
  Receive Date: 20220110
  Receipt Date: 20220218
  Transmission Date: 20220423
  Serious: No
  Sender: FDA-Public Use
  Company Number: US-BIOMARINAP-US-2022-140543

PATIENT
  Sex: Female

DRUGS (1)
  1. PALYNZIQ [Suspect]
     Active Substance: PEGVALIASE-PQPZ
     Indication: Phenylketonuria
     Dosage: 60 MILLIGRAM
     Route: 065
     Dates: start: 20210401

REACTIONS (4)
  - Rheumatoid arthritis [Unknown]
  - Rheumatoid factor increased [Unknown]
  - Pain in extremity [Unknown]
  - Arthralgia [Unknown]
